FAERS Safety Report 10452109 (Version 3)
Quarter: 2015Q2

REPORT INFORMATION
  Report Type: Spontaneous
  Country: US (occurrence: US)
  Receive Date: 20140915
  Receipt Date: 20150512
  Transmission Date: 20150821
  Serious: No
  Sender: FDA-Public Use
  Company Number: US-BAYER-2014-137264

PATIENT
  Age: 35 Year
  Sex: Female

DRUGS (2)
  1. BETASERON [Suspect]
     Active Substance: INTERFERON BETA-1B
     Indication: MULTIPLE SCLEROSIS
     Dosage: 0.25 UNK, UNK
     Route: 058
     Dates: start: 20141111
  2. BETASERON [Suspect]
     Active Substance: INTERFERON BETA-1B
     Indication: MULTIPLE SCLEROSIS
     Dosage: 0.3 MG, QOD
     Route: 058
     Dates: start: 20130913, end: 20141111

REACTIONS (8)
  - Pain [None]
  - Influenza like illness [None]
  - Nausea [None]
  - Fatigue [None]
  - Pyrexia [None]
  - Chills [None]
  - Injection site reaction [None]
  - Influenza like illness [None]

NARRATIVE: CASE EVENT DATE: 20150506
